FAERS Safety Report 26169719 (Version 1)
Quarter: 2025Q4

REPORT INFORMATION
  Report Type: Spontaneous
  Country: EU (occurrence: EU)
  Receive Date: 20251217
  Receipt Date: 20251217
  Transmission Date: 20260118
  Serious: Yes (Other)
  Sender: NOVO NORDISK
  Company Number: None

PATIENT
  Age: 59 Year
  Sex: Female
  Weight: 99 kg

DRUGS (4)
  1. OZEMPIC [Suspect]
     Active Substance: SEMAGLUTIDE
     Indication: Obesity
     Dosage: UNK
     Route: 058
     Dates: start: 202308
  2. OZEMPIC [Suspect]
     Active Substance: SEMAGLUTIDE
     Indication: Lipoedema
     Dosage: 1 MG, QW
     Route: 058
     Dates: start: 202406, end: 20250910
  3. LEVOTHYROXINE SODIUM [Concomitant]
     Active Substance: LEVOTHYROXINE SODIUM
     Dosage: UNK
  4. DESOGESTREL [Concomitant]
     Active Substance: DESOGESTREL
     Dosage: DESOGESTREL 75

REACTIONS (9)
  - Pulmonary microemboli [Not Recovered/Not Resolved]
  - Malaise [Not Recovered/Not Resolved]
  - Tachypnoea [Not Recovered/Not Resolved]
  - Lacrimation increased [Not Recovered/Not Resolved]
  - Hyperhidrosis [Not Recovered/Not Resolved]
  - Dyspnoea [Not Recovered/Not Resolved]
  - Chills [Not Recovered/Not Resolved]
  - Tachycardia [Not Recovered/Not Resolved]
  - Product use in unapproved indication [Unknown]

NARRATIVE: CASE EVENT DATE: 20230801
